FAERS Safety Report 10364741 (Version 1)
Quarter: 2014Q3

REPORT INFORMATION
  Report Type: Report from Study
  Country: US (occurrence: US)
  Receive Date: 20140806
  Receipt Date: 20140806
  Transmission Date: 20150326
  Serious: Yes (Other)
  Sender: FDA-Public Use
  Company Number: US-ROCHE-1445294

PATIENT
  Age: 56 Year
  Sex: Female
  Weight: 83.99 kg

DRUGS (6)
  1. ATIVAN [Concomitant]
     Active Substance: LORAZEPAM
     Indication: ANXIETY
     Dosage: AS NEEDED
     Route: 048
  2. HERCEPTIN [Suspect]
     Active Substance: TRASTUZUMAB
     Indication: BREAST CANCER
     Dosage: THERAPY STARTED IN OCT/2013
     Route: 065
     Dates: start: 201310
  3. FLEXERIL [Concomitant]
     Active Substance: CYCLOBENZAPRINE HYDROCHLORIDE
     Indication: PAIN
     Dosage: AS NEEDED
     Route: 048
  4. TAXOL [Concomitant]
     Active Substance: PACLITAXEL
     Indication: BREAST CANCER
     Route: 065
     Dates: start: 201310
  5. B12 COMPLEX [Concomitant]
     Indication: DYSPEPSIA
     Route: 065
     Dates: start: 2011
  6. DEXILANT [Concomitant]
     Active Substance: DEXLANSOPRAZOLE
     Indication: DYSPEPSIA
     Route: 048

REACTIONS (6)
  - Headache [Not Recovered/Not Resolved]
  - Paralysis [Not Recovered/Not Resolved]
  - Myalgia [Not Recovered/Not Resolved]
  - Diplopia [Not Recovered/Not Resolved]
  - Staphylococcal infection [Recovering/Resolving]
  - Fatigue [Not Recovered/Not Resolved]

NARRATIVE: CASE EVENT DATE: 201310
